FAERS Safety Report 9170015 (Version 1)
Quarter: 2013Q1

REPORT INFORMATION
  Report Type: Spontaneous
  Country: JP (occurrence: JP)
  Receive Date: 20130319
  Receipt Date: 20130319
  Transmission Date: 20140127
  Serious: Yes (Disabling)
  Sender: FDA-Public Use
  Company Number: JP-009507513-1303JPN007126

PATIENT
  Age: 79 Year
  Sex: Female

DRUGS (3)
  1. JANUVIA TABLETS 50MG [Suspect]
     Indication: DIABETES MELLITUS
     Dosage: 50 MG, QD
     Route: 048
  2. AMARYL [Suspect]
     Dosage: 2 MG, QD
     Route: 048
  3. ACTOS [Suspect]
     Dosage: 15 MG, QD
     Route: 048

REACTIONS (1)
  - Hypoglycaemia [Not Recovered/Not Resolved]
